FAERS Safety Report 6682025-9 (Version None)
Quarter: 2010Q2

REPORT INFORMATION
  Report Type: 
  Country: None (occurrence: None)
  Receive Date: 20100414
  Receipt Date: 20100414
  Transmission Date: 20101027
  Serious: No
  Sender: FDA-Public Use
  Company Number: None

PATIENT
  Age: 60 Year
  Sex: Female
  Weight: 68.0396 kg

DRUGS (4)
  1. DECADRON [Suspect]
     Indication: MIGRAINE
     Dosage: 2   IV
     Route: 042
     Dates: start: 20100411, end: 20100412
  2. DECADRON [Suspect]
     Indication: PREMEDICATION
     Dosage: 2   IV
     Route: 042
     Dates: start: 20100411, end: 20100412
  3. DECADRON [Suspect]
     Indication: MIGRAINE
     Dosage: 2   IV
     Route: 042
     Dates: start: 20100411, end: 20100412
  4. DECADRON [Suspect]
     Indication: PREMEDICATION
     Dosage: 2   IV
     Route: 042
     Dates: start: 20100411, end: 20100412

REACTIONS (13)
  - DISCOMFORT [None]
  - DRUG HYPERSENSITIVITY [None]
  - ERYTHEMA [None]
  - FEELING HOT [None]
  - HYPERAESTHESIA [None]
  - INSOMNIA [None]
  - LOCAL SWELLING [None]
  - MUSCLE SPASMS [None]
  - MUSCLE TWITCHING [None]
  - OCULAR HYPERAEMIA [None]
  - PAIN [None]
  - RESTLESSNESS [None]
  - TENDERNESS [None]
